FAERS Safety Report 8165181-5 (Version None)
Quarter: 2012Q1

REPORT INFORMATION
  Report Type: 
  Country: None (occurrence: None)
  Receive Date: 20120227
  Receipt Date: 20120223
  Transmission Date: 20120608
  Serious: No
  Sender: FDA-Public Use
  Company Number: US-PFIZER INC-2012049613

PATIENT
  Sex: Female

DRUGS (1)
  1. LYRICA [Suspect]
     Indication: PERIPHERAL NERVE INJURY
     Dosage: 2 CAPSULES OF 100 MG TWO TIMES A DAY
     Route: 048
     Dates: start: 20090101

REACTIONS (2)
  - NAUSEA [None]
  - DIARRHOEA [None]
